FAERS Safety Report 9596119 (Version 1)
Quarter: 2013Q4

REPORT INFORMATION
  Report Type: Spontaneous
  Country: BR (occurrence: BR)
  Receive Date: 20131004
  Receipt Date: 20131004
  Transmission Date: 20140711
  Serious: Yes (Other)
  Sender: FDA-Public Use
  Company Number: BR-PFIZER INC-2013279153

PATIENT
  Age: 83 Year
  Sex: Female
  Weight: 47 kg

DRUGS (2)
  1. XALATAN [Suspect]
     Indication: GLAUCOMA
     Dosage: ONE DROP IN EACH EYE, UNSPECIFIED FREQUENCY
     Route: 047
     Dates: start: 2006, end: 2007
  2. COSOPT [Concomitant]
     Indication: GLAUCOMA
     Dosage: ONE DROP IN EACH EHE, UNSPECIFIED FREQUENCY
     Dates: start: 2003, end: 2013

REACTIONS (1)
  - Cataract [Unknown]
